FAERS Safety Report 9661107 (Version 1)
Quarter: 2013Q4

REPORT INFORMATION
  Report Type: Spontaneous
  Country: IT (occurrence: IT)
  Receive Date: 20131031
  Receipt Date: 20131031
  Transmission Date: 20140711
  Serious: Yes (Disabling)
  Sender: FDA-Public Use
  Company Number: IT-JNJFOC-20131019063

PATIENT
  Sex: 0

DRUGS (3)
  1. ABCIXIMAB [Suspect]
     Indication: BASILAR ARTERY OCCLUSION
     Route: 013
  2. HEPARIN [Suspect]
     Indication: BASILAR ARTERY OCCLUSION
     Route: 040
  3. ALTEPLASE [Suspect]
     Indication: BASILAR ARTERY OCCLUSION
     Route: 013

REACTIONS (2)
  - Modified Rankin score increased [Unknown]
  - Incorrect route of drug administration [Unknown]
